FAERS Safety Report 22068551 (Version 2)
Quarter: 2023Q2

REPORT INFORMATION
  Report Type: Report from Study
  Country: US (occurrence: US)
  Receive Date: 20230307
  Receipt Date: 20230610
  Transmission Date: 20230722
  Serious: Yes (Hospitalization, Other)
  Sender: FDA-Public Use
  Company Number: US-ARGENX-2022-ARGX-US001976

PATIENT
  Age: 89 Year
  Sex: Male
  Weight: 78.6 kg

DRUGS (1)
  1. VYVGART [Suspect]
     Active Substance: EFGARTIGIMOD ALFA-FCAB
     Indication: Myasthenia gravis
     Dosage: 10 MG/KG
     Route: 042

REACTIONS (8)
  - Sigmoidectomy [Unknown]
  - Abscess drainage [Unknown]
  - Balance disorder [Unknown]
  - Salivary gland enlargement [Not Recovered/Not Resolved]
  - Salivary gland pain [Recovered/Resolved]
  - Postoperative abscess [Unknown]
  - Muscular weakness [Unknown]
  - Fall [Unknown]

NARRATIVE: CASE EVENT DATE: 20221118
